FAERS Safety Report 12942547 (Version 4)
Quarter: 2022Q1

REPORT INFORMATION
  Report Type: Spontaneous
  Country: US (occurrence: US)
  Receive Date: 20161115
  Receipt Date: 20220120
  Transmission Date: 20220423
  Serious: Yes (Other)
  Sender: FDA-Public Use
  Company Number: US-JNJFOC-20161110122

PATIENT
  Age: 18 Year
  Sex: Male

DRUGS (8)
  1. RISPERDAL [Suspect]
     Active Substance: RISPERIDONE
     Indication: Major depression
     Route: 048
     Dates: start: 2004
  2. RISPERDAL [Suspect]
     Active Substance: RISPERIDONE
     Indication: Schizophrenia
     Route: 048
     Dates: start: 2005, end: 2006
  3. RISPERDAL [Suspect]
     Active Substance: RISPERIDONE
     Route: 048
     Dates: start: 2008
  4. RISPERDAL [Suspect]
     Active Substance: RISPERIDONE
     Route: 048
     Dates: end: 2011
  5. INVEGA SUSTENNA [Suspect]
     Active Substance: PALIPERIDONE PALMITATE
     Indication: Schizophrenia
     Dosage: IN VARYING DOSE OF 156 MG TO 256 MG.
     Route: 030
     Dates: start: 2011
  6. INVEGA SUSTENNA [Suspect]
     Active Substance: PALIPERIDONE PALMITATE
     Indication: Psychotic disorder
  7. INVEGA SUSTENNA [Suspect]
     Active Substance: PALIPERIDONE PALMITATE
  8. INVEGA [Suspect]
     Active Substance: PALIPERIDONE
     Indication: Psychotic disorder
     Route: 048
     Dates: end: 20100827

REACTIONS (3)
  - Obesity [Recovering/Resolving]
  - Gynaecomastia [Unknown]
  - Sedation [Unknown]

NARRATIVE: CASE EVENT DATE: 20070601
